FAERS Safety Report 4465492-0 (Version None)
Quarter: 2004Q3

REPORT INFORMATION
  Report Type: 
  Country: None (occurrence: None)
  Receive Date: 20040930
  Receipt Date: 20040914
  Transmission Date: 20050211
  Serious: Yes (Other)
  Sender: FDA-Public Use
  Company Number: 2004-DE-04839GD

PATIENT
  Age: 39 Year
  Sex: Male

DRUGS (8)
  1. NEVIRAPINE (NEVIRAPINE) (NR) (NEVIRAPINE) [Suspect]
     Indication: HIV TEST POSITIVE
  2. PREDNISONE [Suspect]
     Indication: TUBERCULOSIS
     Dosage: 15/10 MG
  3. TENOFOVIR (TENOFOVIR) (NR) [Suspect]
     Indication: HIV TEST POSITIVE
     Dosage: 300 MG (ONCE)
  4. LAMIVUDINE [Suspect]
     Indication: HIV TEST POSITIVE
     Dosage: 300 MG (ONCE)
  5. RIFABUTIN (RIFABUTIN) (NR) [Suspect]
     Indication: TUBERCULOSIS
     Dosage: 1350 MG
  6. ISONIAZID [Suspect]
     Indication: TUBERCULOSIS
     Dosage: 750 MG
  7. ETHAMBUTOL (ETHAMBUTOL) (NR) [Suspect]
     Indication: TUBERCULOSIS
     Dosage: 900 MG
  8. PYRIDOXINE (PYRIDOXINE) [Suspect]
     Indication: TUBERCULOSIS
     Dosage: 50 MG

REACTIONS (5)
  - DRUG INTERACTION [None]
  - DRUG LEVEL DECREASED [None]
  - IRITIS [None]
  - LYMPHADENOPATHY [None]
  - TUBERCULOSIS [None]
